FAERS Safety Report 18095335 (Version 4)
Quarter: 2020Q3

REPORT INFORMATION
  Report Type: Spontaneous
  Country: DE (occurrence: DE)
  Receive Date: 20200730
  Receipt Date: 20200923
  Transmission Date: 20201103
  Serious: Yes (Hospitalization)
  Sender: FDA-Public Use
  Company Number: DE-MYLANLABS-2020M1067789

PATIENT
  Sex: Female
  Weight: 60 kg

DRUGS (21)
  1. VALSARTAN. [Suspect]
     Active Substance: VALSARTAN
     Indication: PRODUCT USED FOR UNKNOWN INDICATION
     Dosage: 160 MILLIGRAM
  2. INDAPAMID [Concomitant]
     Active Substance: INDAPAMIDE
     Dosage: 2.5 MILLIGRAM, 1?0?0
  3. TORASEMID?1A PHARMA [Concomitant]
     Active Substance: TORSEMIDE
     Dosage: UNK
     Dates: start: 20180604
  4. ATORVASTATIN 1 A PHARMA [Concomitant]
     Active Substance: ATORVASTATIN CALCIUM
     Dosage: 20 MILLIGRAM, QD
  5. PANTOPRAZOL                        /01263201/ [Concomitant]
     Active Substance: PANTOPRAZOLE
     Dosage: 40 MILLIGRAM, 1?0?1 (FOR 2 WEEKS, THEN 1?0?0 FOR FURTHER TWO WEEKS, THEN WITHDRAWAL)
  6. VALSARTAN DURA 160 MG FILMTABLETTEN [Suspect]
     Active Substance: VALSARTAN
     Dosage: 160 MILLIGRAM
     Route: 048
     Dates: start: 201503, end: 2018
  7. BAYOTENSIN [Concomitant]
     Active Substance: NITRENDIPINE
     Indication: HYPERTENSION
     Dosage: UNK
  8. MOXONIDINE [Concomitant]
     Active Substance: MOXONIDINE
     Dosage: 1 DOSAGE FORM
     Route: 048
  9. VALSARTAN MYLAN [Suspect]
     Active Substance: VALSARTAN
     Indication: PRODUCT USED FOR UNKNOWN INDICATION
     Dosage: 160 MILLIGRAM
     Route: 048
  10. TORASEMID?1A PHARMA [Concomitant]
     Active Substance: TORSEMIDE
     Dosage: UNK
  11. VALSARTAN. [Suspect]
     Active Substance: VALSARTAN
     Indication: PRODUCT USED FOR UNKNOWN INDICATION
     Dosage: 160 MILLIGRAM (VALSARTAN (ABZ))
  12. LERCANIDIPINE [Concomitant]
     Active Substance: LERCANIDIPINE
     Dosage: 10 MILLIGRAM, BID
  13. AMLODIPIN                          /00972401/ [Concomitant]
     Active Substance: AMLODIPINE BESYLATE
     Indication: HYPERTENSION
     Dosage: 5 MILLIGRAM, BID
     Route: 048
  14. VALSARTAN. [Suspect]
     Active Substance: VALSARTAN
     Indication: PRODUCT USED FOR UNKNOWN INDICATION
     Dosage: 160 MILLIGRAM
  15. TORASEMID?1A PHARMA [Concomitant]
     Active Substance: TORSEMIDE
     Dosage: UNK
     Dates: start: 20180314
  16. METOPROLOLSUCCINAT 1 A PHARMA [Concomitant]
     Active Substance: METOPROLOL SUCCINATE
     Dosage: 47.5 MILLIGRAM, BID
  17. AMLODIPIN 1 A PHARMA [Concomitant]
     Active Substance: AMLODIPINE BESYLATE
     Dosage: UNK
  18. VALSARTAN DURA 160 MG FILMTABLETTEN [Suspect]
     Active Substance: VALSARTAN
     Indication: HYPERTENSION
     Dosage: 160 MILLIGRAM
     Route: 048
     Dates: start: 1998
  19. AMLODIPIN BESILAT HEUMANN [Concomitant]
     Dosage: UNK
  20. BELOC ZOK MITE [Concomitant]
     Active Substance: METOPROLOL SUCCINATE
     Indication: HYPERTENSION
     Dosage: 47.5 MILLIGRAM, QD
     Route: 048
     Dates: start: 1990
  21. CANDESARTAN. [Concomitant]
     Active Substance: CANDESARTAN
     Dosage: 32 MILLIGRAM, 1?0?0

REACTIONS (4)
  - Procedural pain [Unknown]
  - General physical health deterioration [Unknown]
  - Gastrointestinal stromal tumour [Unknown]
  - Hypertension [Unknown]

NARRATIVE: CASE EVENT DATE: 20190821
